FAERS Safety Report 16353869 (Version 2)
Quarter: 2019Q4

REPORT INFORMATION
  Report Type: Report from Study
  Country: CO (occurrence: CO)
  Receive Date: 20190524
  Receipt Date: 20191031
  Transmission Date: 20200122
  Serious: Yes (Hospitalization, Other)
  Sender: FDA-Public Use
  Company Number: CO-ASTELLAS-2019US022185

PATIENT
  Age: 48 Year
  Sex: Male
  Weight: 62 kg

DRUGS (10)
  1. ITRACONAZOLE. [Concomitant]
     Active Substance: ITRACONAZOLE
     Indication: FUNGAL INFECTION
     Dosage: 40 CC, ONCE DAILY
     Route: 048
     Dates: start: 201905
  2. TACROLIMUS. [Suspect]
     Active Substance: TACROLIMUS
     Indication: RENAL TRANSPLANT
     Route: 048
     Dates: start: 20180415, end: 20190506
  3. CALCITRIOL. [Concomitant]
     Active Substance: CALCITRIOL
     Indication: HYPOTHYROIDISM
     Route: 048
     Dates: start: 2017
  4. PREDNISOLONE. [Concomitant]
     Active Substance: PREDNISOLONE
     Indication: RENAL TRANSPLANT
     Route: 048
     Dates: start: 20180415
  5. PRAZOSIN. [Concomitant]
     Active Substance: PRAZOSIN
     Indication: BLOOD PRESSURE MEASUREMENT
     Route: 048
  6. OMEPRAZOLE. [Concomitant]
     Active Substance: OMEPRAZOLE
     Indication: GASTRITIS
     Route: 048
  7. ERYTHROPOIETIN [Concomitant]
     Active Substance: ERYTHROPOIETIN
     Indication: ANAEMIA
     Dosage: 2000 UNITS EVERY 48 HOURS
     Route: 058
  8. TACROLIMUS. [Suspect]
     Active Substance: TACROLIMUS
     Indication: IMMUNOSUPPRESSION
     Route: 048
     Dates: start: 20190507, end: 201908
  9. PREDNISOLONE. [Concomitant]
     Active Substance: PREDNISOLONE
     Indication: RENAL DISORDER
     Route: 048
     Dates: start: 19970423
  10. CALCIUM CARBONATE. [Concomitant]
     Active Substance: CALCIUM CARBONATE
     Indication: BONE PAIN
     Route: 048
     Dates: start: 2017

REACTIONS (5)
  - Abdominal pain [Recovered/Resolved]
  - Pain [Recovered/Resolved]
  - Immunosuppressant drug level increased [Recovering/Resolving]
  - Immunosuppression [Recovering/Resolving]
  - Paracoccidioides infection [Recovered/Resolved]

NARRATIVE: CASE EVENT DATE: 20190401
